FAERS Safety Report 14884390 (Version 1)
Quarter: 2018Q2

REPORT INFORMATION
  Report Type: Spontaneous
  Country: US (occurrence: US)
  Receive Date: 20180511
  Receipt Date: 20180511
  Transmission Date: 20180711
  Serious: Yes (Other)
  Sender: FDA-Public Use
  Company Number: US-THE MENTHOLATUM COMPANY-2047640

PATIENT
  Age: 56 Year
  Sex: Female

DRUGS (1)
  1. OXY MAXIMUM ACTION FACE WASH [Suspect]
     Active Substance: BENZOYL PEROXIDE
     Route: 061
     Dates: start: 20180503, end: 20180503

REACTIONS (1)
  - Chemical burn [Recovered/Resolved]

NARRATIVE: CASE EVENT DATE: 20180504
